FAERS Safety Report 10189082 (Version 1)
Quarter: 2014Q2

REPORT INFORMATION
  Report Type: Report from Study
  Country: AU (occurrence: None)
  Receive Date: 20140520
  Receipt Date: 20140520
  Transmission Date: 20141212
  Serious: Yes (Other)
  Sender: FDA-Public Use
  Company Number: 2014-19544

PATIENT
  Age: 76 Year
  Sex: Female

DRUGS (1)
  1. EYLEA (AFLIBERCEPT) INJECTION)AFLIBERCEPT) [Suspect]
     Indication: AGE-RELATED MACULAR DEGENERATION
     Dosage: LEFT EYELOADING DOSE.
     Route: 031
     Dates: start: 20140414

REACTIONS (4)
  - Scleral haemorrhage [None]
  - Age-related macular degeneration [None]
  - Foreign body sensation in eyes [None]
  - Inappropriate schedule of drug administration [None]
